FAERS Safety Report 25115392 (Version 1)
Quarter: 2025Q1

REPORT INFORMATION
  Report Type: Report from Study
  Country: GB (occurrence: GB)
  Receive Date: 20250324
  Receipt Date: 20250324
  Transmission Date: 20250409
  Serious: Yes (Other)
  Sender: BAYER HEALTHCARE PHARMACEUTICALS INC.
  Company Number: GB-BAYER-2024A166511

PATIENT
  Age: 73 Year
  Sex: Male

DRUGS (2)
  1. NUBEQA [Suspect]
     Active Substance: DAROLUTAMIDE
     Indication: Hormone-dependent prostate cancer
     Dosage: 600 MG, BID
     Route: 048
     Dates: start: 20230929
  2. FIRMAGON [Suspect]
     Active Substance: DEGARELIX ACETATE

REACTIONS (6)
  - Liver function test abnormal [Not Recovered/Not Resolved]
  - Lower respiratory tract infection [Recovering/Resolving]
  - Blood alkaline phosphatase increased [Not Recovered/Not Resolved]
  - Alanine aminotransferase increased [Not Recovered/Not Resolved]
  - Rhinorrhoea [Recovering/Resolving]
  - Injection site swelling [Not Recovered/Not Resolved]

NARRATIVE: CASE EVENT DATE: 20241101
